FAERS Safety Report 4490258-5 (Version None)
Quarter: 2004Q4

REPORT INFORMATION
  Report Type: 
  Country: None (occurrence: None)
  Receive Date: 20041028
  Receipt Date: 20041015
  Transmission Date: 20050328
  Serious: Yes (Hospitalization, Other)
  Sender: FDA-Public Use
  Company Number: 2004058232

PATIENT
  Sex: Male
  Weight: 71.6683 kg

DRUGS (22)
  1. DIFLUCAN [Suspect]
     Indication: ORAL CANDIDIASIS
     Dosage: 400 MG (200 MG, 2 IN 1 D), ORAL
     Route: 048
  2. VFEND [Suspect]
     Indication: ORAL CANDIDIASIS
     Dosage: 400 MG (200 MG, 2 IN 1 D), ORAL
     Route: 048
     Dates: start: 20040621, end: 20040820
  3. METHADONE HCL [Suspect]
     Indication: PAIN
     Dosage: 40 MG (20 MG , 2 IN 1 D), ORAL
     Route: 048
  4. RITONAVIR (RITONAVIR) [Suspect]
     Indication: ACQUIRED IMMUNODEFICIENCY SYNDROME
     Dosage: 100 MG (100 MG, 1 IN 1 D), ORAL
     Route: 048
     Dates: start: 20040101
  5. ITRACONAZOLE [Suspect]
     Indication: ILL-DEFINED DISORDER
     Dosage: 1 D
  6. METOPROLOL SUCCINATE [Concomitant]
  7. ALPRAZOLAM [Concomitant]
  8. LEMOTIL (ATROPINE SULFATE, DIPHENOXYLATE HYDROCHLORIDE) [Concomitant]
  9. TENOFOVIR DISOPROXIL FUMARATE (TENOFOVIR DISOPROXIL FUMARATE) [Concomitant]
  10. FAMCICLOVIR (FAMCICLOVIR) [Concomitant]
  11. ACETYLSALICYLIC ACID (ACETYLSALYCILIC ACID) [Concomitant]
  12. ATAZANAVIR SULFATE (ATAZANAVIR SULFATE) [Concomitant]
  13. LANSOPRAZOLE [Concomitant]
  14. ESCITALOPRAM (ESCITALOPRAM) [Concomitant]
  15. CLONIDINE [Concomitant]
  16. ZIDOVUDINE W/ LAMIVUDINE (LAMIVUDINE, ZIDOVUDINE) [Concomitant]
  17. MONTELUKAST (MONTELUKAST) [Concomitant]
  18. BACTRIL (SULFAMETHOXAZOLE, TRIMETHOPRIM) [Concomitant]
  19. NANDROLONE (NANDROLONE) [Concomitant]
  20. TESTOSTERONE [Concomitant]
  21. CYANOCOBALAMIN (CYANOCOBALAMIN) [Concomitant]
  22. SULFADIAZINE SILVER (SULFADIAZINE SILVER) [Concomitant]

REACTIONS (16)
  - BOWEN'S DISEASE [None]
  - CANDIDIASIS [None]
  - COMA [None]
  - CONVULSION [None]
  - DEPRESSED LEVEL OF CONSCIOUSNESS [None]
  - DRUG INEFFECTIVE [None]
  - DRUG INTERACTION [None]
  - DRUG LEVEL ABOVE THERAPEUTIC [None]
  - EMPYEMA [None]
  - LOSS OF CONSCIOUSNESS [None]
  - MULTIPLE-DRUG RESISTANCE [None]
  - MUSCULOSKELETAL STIFFNESS [None]
  - PAIN [None]
  - SOMNOLENCE [None]
  - STAPHYLOCOCCAL INFECTION [None]
  - SYNCOPE [None]
